FAERS Safety Report 8462582 (Version 2)
Quarter: 2012Q4

REPORT INFORMATION
  Report Type: Report from Study
  Country: US (occurrence: US)
  Receive Date: 20120316
  Receipt Date: 20121207
  Transmission Date: 20130627
  Serious: Yes (Hospitalization, Other)
  Sender: FDA-Public Use
  Company Number: US-US-EMD SERONO, INC.-7112137

PATIENT
  Age: 53 Year
  Sex: Female

DRUGS (8)
  1. REBIF [Suspect]
     Indication: MULTIPLE SCLEROSIS
     Route: 058
     Dates: start: 20100701
  2. REBIF [Suspect]
     Route: 058
     Dates: end: 20120109
  3. REBIF [Suspect]
     Route: 058
     Dates: start: 201203, end: 201210
  4. LIBRAX [Concomitant]
     Indication: IRRITABLE BOWEL SYNDROME
  5. OXYCONTIN [Concomitant]
     Indication: PRODUCT USED FOR UNKNOWN INDICATION
  6. MS CONTIN [Concomitant]
     Indication: PRODUCT USED FOR UNKNOWN INDICATION
  7. VICODIN [Concomitant]
     Indication: PRODUCT USED FOR UNKNOWN INDICATION
  8. PERCOCET [Concomitant]
     Indication: PRODUCT USED FOR UNKNOWN INDICATION

REACTIONS (4)
  - Clostridium difficile infection [Recovered/Resolved]
  - Multiple sclerosis relapse [Recovered/Resolved]
  - Back pain [Unknown]
  - Influenza like illness [Unknown]
